FAERS Safety Report 8772540 (Version 3)
Quarter: 2013Q1

REPORT INFORMATION
  Report Type: Spontaneous
  Country: US (occurrence: US)
  Receive Date: 20120905
  Receipt Date: 20130202
  Transmission Date: 20140127
  Serious: Yes (Hospitalization)
  Sender: FDA-Public Use
  Company Number: US-B.I. PHARMACEUTICALS,INC./RIDGEFIELD-2012-BP-20986BP

PATIENT
  Age: 62 Year
  Sex: Male
  Weight: 107.05 kg

DRUGS (12)
  1. PRADAXA [Suspect]
     Indication: ANTICOAGULANT THERAPY
     Dosage: 300 MG
     Route: 048
     Dates: start: 201109, end: 201203
  2. DIGOXIN [Concomitant]
     Dosage: 0.25 MG
     Route: 048
     Dates: start: 2007
  3. SIMINSTATI [Concomitant]
     Dates: start: 2007
  4. METFORMIN [Concomitant]
     Dosage: 2 G
     Route: 048
     Dates: start: 2007
  5. GLIPIZIDE [Concomitant]
     Dosage: 50 MG
     Route: 048
     Dates: start: 2007
  6. THIORIDAZINE [Concomitant]
     Dates: start: 2007
  7. ROPINEROLE [Concomitant]
     Route: 048
     Dates: start: 2007
  8. XANAX [Concomitant]
     Route: 048
     Dates: start: 2007
  9. DESPIRAMINE [Concomitant]
     Route: 048
     Dates: start: 2007
  10. SOTALOL [Concomitant]
     Dosage: 160 MG
     Route: 048
     Dates: start: 2011, end: 2012
  11. FUROSEMIDE [Concomitant]
     Dates: start: 2011, end: 2012
  12. METHIMIZOLW [Concomitant]
     Dosage: 15 MG
     Route: 048
     Dates: start: 2011, end: 2012

REACTIONS (3)
  - Haemorrhage [Unknown]
  - Pericardial haemorrhage [Unknown]
  - Epistaxis [Unknown]
